FAERS Safety Report 21149859 (Version 5)
Quarter: 2023Q1

REPORT INFORMATION
  Report Type: Spontaneous
  Country: US (occurrence: US)
  Receive Date: 20220729
  Receipt Date: 20230208
  Transmission Date: 20230418
  Serious: No
  Sender: FDA-Public Use
  Company Number: US-PFIZER INC-202201010887

PATIENT
  Age: 19 Year
  Sex: Female

DRUGS (1)
  1. EUCRISA [Suspect]
     Active Substance: CRISABOROLE
     Dosage: UNK

REACTIONS (1)
  - Chemical burn of skin [Unknown]
